FAERS Safety Report 5847162-7 (Version None)
Quarter: 2008Q3

REPORT INFORMATION
  Report Type: 
  Country: None (occurrence: None)
  Receive Date: 20080815
  Receipt Date: 20080808
  Transmission Date: 20090109
  Serious: Yes (Hospitalization)
  Sender: FDA-Public Use
  Company Number: PHHY2008FR10000

PATIENT
  Age: 48 Year
  Sex: Female

DRUGS (6)
  1. FEMARA [Suspect]
     Indication: BREAST CANCER
     Dosage: 2.5 MG, QD
     Dates: start: 20080301
  2. ANTINEOPLASTIC AGENTS [Suspect]
  3. AVASTIN [Concomitant]
  4. LEXOMIL [Concomitant]
  5. PREVISCAN [Concomitant]
  6. IXPRIM [Concomitant]

REACTIONS (5)
  - ARTHRALGIA [None]
  - GAMMA-GLUTAMYLTRANSFERASE INCREASED [None]
  - NUCLEAR MAGNETIC RESONANCE IMAGING ABNORMAL [None]
  - RHEUMATOID ARTHRITIS [None]
  - TENDON DISORDER [None]
